FAERS Safety Report 4497618-7 (Version None)
Quarter: 2004Q4

REPORT INFORMATION
  Report Type: 
  Country: None (occurrence: None)
  Receive Date: 20041105
  Receipt Date: 20041022
  Transmission Date: 20050328
  Serious: Yes (Other)
  Sender: FDA-Public Use
  Company Number: FR-JNJFOC-20040902078

PATIENT
  Age: 52 Year
  Sex: Female
  Weight: 63 kg

DRUGS (2)
  1. CAELYX [Suspect]
     Indication: OVARIAN CANCER METASTATIC
     Dosage: 40 MG/M2 X 3 CYCLES
     Route: 042
  2. ENDOXAN [Suspect]
     Indication: OVARIAN CANCER METASTATIC
     Dosage: 600 MG/M2 X 3 CYCLES
     Route: 042

REACTIONS (2)
  - PALMAR-PLANTAR ERYTHRODYSAESTHESIA SYNDROME [None]
  - TOXIC SKIN ERUPTION [None]
